FAERS Safety Report 15316950 (Version 1)
Quarter: 2018Q3

REPORT INFORMATION
  Report Type: Spontaneous
  Country: GB (occurrence: GB)
  Receive Date: 20180824
  Receipt Date: 20180824
  Transmission Date: 20181010
  Serious: Yes (Death, Congenital Anomaly)
  Sender: FDA-Public Use
  Company Number: GB-CANTON LABORATORIES, LLC-2054199

PATIENT
  Sex: Female

DRUGS (3)
  1. NAPROSYN [Suspect]
     Active Substance: NAPROXEN
     Indication: FOETAL EXPOSURE DURING PREGNANCY
     Route: 064
     Dates: start: 20170106, end: 20170114
  2. PARACETAMOL [Concomitant]
     Active Substance: ACETAMINOPHEN
     Route: 064
  3. PREGNACARE [Concomitant]
     Active Substance: MINERALS\VITAMINS
     Route: 064

REACTIONS (7)
  - Foetal exposure during pregnancy [Unknown]
  - Micrognathia [Not Recovered/Not Resolved]
  - Congenital pulmonary valve atresia [Not Recovered/Not Resolved]
  - Cleft lip [Not Recovered/Not Resolved]
  - Caudal regression syndrome [Not Recovered/Not Resolved]
  - Ventricular septal defect [Fatal]
  - Congenital foot malformation [Not Recovered/Not Resolved]
